FAERS Safety Report 9934733 (Version 1)
Quarter: 2014Q1

REPORT INFORMATION
  Report Type: Report from Study
  Country: US (occurrence: US)
  Receive Date: 20140228
  Receipt Date: 20140228
  Transmission Date: 20141002
  Serious: Yes (Other)
  Sender: FDA-Public Use
  Company Number: US-ABBVIE-14P-163-1204955-00

PATIENT
  Age: 40 Year
  Sex: Female

DRUGS (17)
  1. HUMIRA [Suspect]
     Indication: RHEUMATOID ARTHRITIS
     Dates: start: 200309, end: 201401
  2. ADVAIR [Concomitant]
     Indication: ASTHMA
     Dosage: 250/50 MG
  3. AMITIZA [Concomitant]
     Indication: IRRITABLE BOWEL SYNDROME
  4. AMITRIPTYLINE [Concomitant]
     Indication: INSOMNIA
     Dosage: EVERY NIGHT
  5. BUPROPION [Concomitant]
     Indication: DEPRESSION
  6. GABAPENTIN [Concomitant]
     Indication: RESTLESS LEGS SYNDROME
  7. LEVOTHYROXINE [Concomitant]
     Indication: HYPOTHYROIDISM
  8. RITALIN [Concomitant]
     Indication: NARCOLEPSY
  9. NASONEX [Concomitant]
     Indication: SEASONAL ALLERGY
     Dosage: 120 SPRAYS/17 GRAMS SPRAY TWICE IN EACH NOSTRIL EVERY DAY AND PRN
  10. OMEPRAZOLE [Concomitant]
     Indication: GASTROOESOPHAGEAL REFLUX DISEASE
  11. POTASSIUM [Concomitant]
     Indication: BLOOD POTASSIUM DECREASED
     Dosage: ER
  12. TIZANIDINE [Concomitant]
     Indication: MUSCLE SPASMS
  13. TIZANIDINE [Concomitant]
     Indication: MUSCLE SPASMS
  14. ZOLPIDEM [Concomitant]
     Indication: INSOMNIA
     Dosage: EVERY NIGHT
  15. VIVELLE DOT [Concomitant]
     Indication: OESTROGEN REPLACEMENT THERAPY
     Dosage: 0.05 PATCH
  16. TRAMADOL [Concomitant]
     Indication: PAIN
  17. VENTOLIN HFA [Concomitant]
     Indication: ASTHMA
     Dosage: INHALER

REACTIONS (8)
  - Gait disturbance [Recovering/Resolving]
  - Muscular weakness [Recovering/Resolving]
  - Injection site bruising [Not Recovered/Not Resolved]
  - Injection site swelling [Not Recovered/Not Resolved]
  - Hypertension [Recovering/Resolving]
  - Blood cholesterol increased [Unknown]
  - Migraine [Recovered/Resolved]
  - Activities of daily living impaired [Recovered/Resolved]
